FAERS Safety Report 7096049-3 (Version None)
Quarter: 2010Q4

REPORT INFORMATION
  Report Type: 
  Country: None (occurrence: None)
  Receive Date: 20101111
  Receipt Date: 20101101
  Transmission Date: 20110411
  Serious: Yes (Other)
  Sender: FDA-Public Use
  Company Number: PHHY2010US74253

PATIENT
  Sex: Male

DRUGS (3)
  1. TEGRETOL [Suspect]
     Dosage: UNK
  2. LAMICTAL [Suspect]
     Dosage: UNK
  3. ZANTAC [Suspect]
     Dosage: UNK

REACTIONS (5)
  - ABNORMAL BEHAVIOUR [None]
  - BLEPHAROSPASM [None]
  - CONVULSION [None]
  - FATIGUE [None]
  - VOMITING [None]
